FAERS Safety Report 16011520 (Version 5)
Quarter: 2022Q2

REPORT INFORMATION
  Report Type: Spontaneous
  Country: US (occurrence: US)
  Receive Date: 20190227
  Receipt Date: 20220429
  Transmission Date: 20220721
  Serious: No
  Sender: FDA-Public Use
  Company Number: US-PFIZER INC-2019073084

PATIENT
  Age: 69 Year
  Sex: Female

DRUGS (3)
  1. LYRICA [Suspect]
     Active Substance: PREGABALIN
     Indication: Fibromyalgia
     Dosage: UNK
  2. LYRICA [Suspect]
     Active Substance: PREGABALIN
     Dosage: 100 MG, 1X/DAY (ONCE DAILY AT NIGHT)
     Route: 048
     Dates: start: 2006
  3. BELSOMRA [Concomitant]
     Active Substance: SUVOREXANT
     Dosage: 20 MG, 1X/DAY (ONCE AT NIGHT)
     Route: 048

REACTIONS (5)
  - Intentional product use issue [Unknown]
  - Expired product administered [Unknown]
  - Pain [Unknown]
  - Somnolence [Unknown]
  - Fibromyalgia [Unknown]

NARRATIVE: CASE EVENT DATE: 20190201
